FAERS Safety Report 16042263 (Version 1)
Quarter: 2019Q2

REPORT INFORMATION
  Report Type: Spontaneous
  Country: US (occurrence: US)
  Receive Date: 20190306
  Receipt Date: 20190306
  Transmission Date: 20190711
  Serious: Yes (Hospitalization)
  Sender: FDA-Public Use
  Company Number: None

PATIENT
  Age: 62 Year
  Sex: Male

DRUGS (20)
  1. LEVOTHYROXIN [Concomitant]
     Active Substance: LEVOTHYROXINE
  2. NITROSTAT [Concomitant]
     Active Substance: NITROGLYCERIN
  3. TYLENOL [Concomitant]
     Active Substance: ACETAMINOPHEN
  4. FISH OIL [Concomitant]
     Active Substance: FISH OIL
  5. FUROSEMIDE. [Concomitant]
     Active Substance: FUROSEMIDE
  6. DULCOLAX NOS [Concomitant]
     Active Substance: BISACODYL OR DOCUSATE SODIUM
  7. ERGOCALCIFER [Concomitant]
  8. SODIUM BICAR [Concomitant]
  9. CALCITRIOL. [Concomitant]
     Active Substance: CALCITRIOL
  10. CALCIUM [Concomitant]
     Active Substance: CALCIUM
  11. CRANBERRY. [Concomitant]
     Active Substance: CRANBERRY
  12. MILK OF MAGN SUS [Concomitant]
  13. FAMOTIDINE. [Concomitant]
     Active Substance: FAMOTIDINE
  14. METOPROLOL TARTRATE. [Concomitant]
     Active Substance: METOPROLOL TARTRATE
  15. ASPIRIN. [Concomitant]
     Active Substance: ASPIRIN
  16. DOCUSTATE [Concomitant]
  17. FENOFIBRATE. [Concomitant]
     Active Substance: FENOFIBRATE
  18. HUMALOG [Concomitant]
     Active Substance: INSULIN LISPRO
  19. ARANESP [Suspect]
     Active Substance: DARBEPOETIN ALFA
     Indication: CHRONIC KIDNEY DISEASE
     Dosage: ?          OTHER FREQUENCY:EVERY TWO WEEKS;?
     Route: 058
     Dates: start: 20160803
  20. LANTUS [Concomitant]
     Active Substance: INSULIN GLARGINE

REACTIONS (3)
  - Diabetes mellitus [None]
  - Therapy cessation [None]
  - Limb amputation [None]
